FAERS Safety Report 6708582-1 (Version None)
Quarter: 2010Q2

REPORT INFORMATION
  Report Type: 
  Country: None (occurrence: None)
  Receive Date: 20100503
  Receipt Date: 20100428
  Transmission Date: 20101027
  Serious: Yes (Other)
  Sender: FDA-Public Use
  Company Number: FR-BRISTOL-MYERS SQUIBB COMPANY-15084452

PATIENT
  Age: 40 Year
  Sex: Male

DRUGS (3)
  1. SUSTIVA [Suspect]
     Indication: HIV INFECTION
     Route: 048
     Dates: start: 20080115, end: 20090601
  2. ATRIPLA [Suspect]
     Indication: HIV INFECTION
     Dosage: 1 DF = EFAVIRENZ 600 MG EMTRICITABINE 200 MG TENOFOVIR DISOPROXIL 245 MG
     Route: 048
     Dates: start: 20090601
  3. TRUVADA [Suspect]
     Indication: HIV INFECTION
     Dosage: THERAPY RESTARTED
     Dates: start: 20071113

REACTIONS (3)
  - DISTURBANCE IN SOCIAL BEHAVIOUR [None]
  - HOMICIDAL IDEATION [None]
  - PERSONALITY CHANGE [None]
